FAERS Safety Report 25096354 (Version 1)
Quarter: 2025Q1

REPORT INFORMATION
  Report Type: Spontaneous
  Country: US (occurrence: US)
  Receive Date: 20250319
  Receipt Date: 20250319
  Transmission Date: 20250409
  Serious: No
  Sender: PFIZER
  Company Number: US-PFIZER INC-202500058450

PATIENT

DRUGS (1)
  1. CHANTIX [Suspect]
     Active Substance: VARENICLINE TARTRATE
     Indication: Smoking cessation therapy

REACTIONS (2)
  - Nausea [Unknown]
  - Decreased appetite [Unknown]
